FAERS Safety Report 14222263 (Version 2)
Quarter: 2017Q4

REPORT INFORMATION
  Report Type: Report from Study
  Country: None (occurrence: IL)
  Receive Date: 20171124
  Receipt Date: 20171201
  Transmission Date: 20180321
  Serious: Yes (Hospitalization)
  Sender: FDA-Public Use
  Company Number: IL-ABBVIE-17K-082-2170589-00

PATIENT
  Age: 74 Year
  Sex: Male

DRUGS (1)
  1. DUODOPA [Suspect]
     Active Substance: CARBIDOPA\LEVODOPA
     Indication: PARKINSON^S DISEASE
     Dosage: CURRENT MORNING DOSE- 10 ML, CURRENT FIXED RATE- 3 ML/ HOUR,??CURRENT EXTRA DOSE- 1 ML
     Route: 050
     Dates: start: 20170828

REACTIONS (5)
  - Prostatomegaly [Unknown]
  - Transurethral prostatectomy [Recovered/Resolved]
  - Urinary retention [Unknown]
  - Infection [Unknown]
  - Asthenia [Recovering/Resolving]

NARRATIVE: CASE EVENT DATE: 2017
